FAERS Safety Report 4550560-5 (Version None)
Quarter: 2004Q4

REPORT INFORMATION
  Report Type: 
  Country: None (occurrence: None)
  Receive Date: 20041227
  Receipt Date: 20041119
  Transmission Date: 20050328
  Serious: No
  Sender: FDA-Public Use
  Company Number: 04P-163-0281096-00

PATIENT
  Age: 80 Year
  Sex: Female
  Weight: 83.9154 kg

DRUGS (5)
  1. HUMIRA [Suspect]
     Indication: RHEUMATOID ARTHRITIS
     Dosage: 1 IN 2 WK, SUBCUTANEOUS
     Route: 058
     Dates: start: 20040101, end: 20041108
  2. DILTIAZEM HYDROCHLORIDE [Concomitant]
  3. FUROSEMIDE [Concomitant]
  4. INSULIN [Concomitant]
  5. ISOPHANE INSULIN [Concomitant]

REACTIONS (1)
  - LOWER RESPIRATORY TRACT INFECTION [None]
